FAERS Safety Report 9460653 (Version 2)
Quarter: 2013Q3

REPORT INFORMATION
  Report Type: Report from Study
  Country: CA (occurrence: CA)
  Receive Date: 20130815
  Receipt Date: 20130816
  Transmission Date: 20140515
  Serious: Yes (Death, Hospitalization, Other)
  Sender: FDA-Public Use
  Company Number: PHHY2013CA088096

PATIENT
  Age: 92 Year
  Sex: Female

DRUGS (8)
  1. ACLASTA [Suspect]
     Indication: OSTEOPOROSIS
     Dosage: UNK UKN, UNK
     Route: 042
     Dates: start: 20091013
  2. ACLASTA [Suspect]
     Dosage: UNK UKN, UNK
     Route: 042
     Dates: start: 20101028
  3. ACLASTA [Suspect]
     Dosage: UNK UKN, UNK
     Route: 042
     Dates: start: 20111028
  4. ACLASTA [Suspect]
     Dosage: UNK UKN, UNK
     Route: 042
     Dates: start: 20121112
  5. EFFEXOR [Concomitant]
  6. VENTOLIN//SALBUTAMOL [Concomitant]
  7. ADVAIR [Concomitant]
  8. OXYGEN [Concomitant]

REACTIONS (3)
  - Respiratory failure [Fatal]
  - Myocardial ischaemia [Unknown]
  - Pneumonia [Unknown]
